FAERS Safety Report 20145719 (Version 2)
Quarter: 2022Q2

REPORT INFORMATION
  Report Type: Spontaneous
  Country: US (occurrence: US)
  Receive Date: 20211203
  Receipt Date: 20220517
  Transmission Date: 20220721
  Serious: No
  Sender: FDA-Public Use
  Company Number: US-PFIZER INC-202101689657

PATIENT
  Age: 72 Year
  Sex: Female

DRUGS (1)
  1. XELJANZ XR [Suspect]
     Active Substance: TOFACITINIB CITRATE
     Indication: Rheumatoid arthritis
     Dosage: 11 MG, 1X/DAY
     Route: 048
     Dates: start: 20191128

REACTIONS (5)
  - Product dose omission issue [Unknown]
  - Eye disorder [Unknown]
  - Rash [Unknown]
  - Rash vesicular [Unknown]
  - Pain [Unknown]

NARRATIVE: CASE EVENT DATE: 20220505
